FAERS Safety Report 18937121 (Version 2)
Quarter: 2021Q2

REPORT INFORMATION
  Report Type: Report from Study
  Country: JP (occurrence: JP)
  Receive Date: 20210224
  Receipt Date: 20210421
  Transmission Date: 20210717
  Serious: Yes (Hospitalization)
  Sender: FDA-Public Use
  Company Number: JP-ASTRAZENECA-2021A068361

PATIENT
  Age: 37 Year
  Sex: Male
  Weight: 93 kg

DRUGS (17)
  1. CANAGLU [Concomitant]
     Active Substance: CANAGLIFLOZIN
     Dosage: NUMBER OF SEPARATE DOSAGES UNKNOWN
     Route: 048
  2. NICORANDIL [Concomitant]
     Active Substance: NICORANDIL
     Dosage: NUMBER OF SEPARATE DOSAGES UNKNOWN
     Route: 048
  3. METFORMIN HYDROCHLORIDE. [Concomitant]
     Active Substance: METFORMIN HYDROCHLORIDE
     Dosage: NUMBER OF SEPARATE DOSAGES UNKNOWN
     Route: 048
  4. CRESTOR [Concomitant]
     Active Substance: ROSUVASTATIN CALCIUM
     Dosage: NUMBER OF SEPARATE DOSAGES UNKNOWN
     Route: 048
  5. NEXIUM CAPSULES 20MG [Concomitant]
     Indication: PROPHYLAXIS
     Route: 048
  6. VICTOZA [Concomitant]
     Active Substance: LIRAGLUTIDE
     Dosage: NUMBER OF SEPARATE DOSAGES UNKNOWN
     Route: 058
  7. BRILINTA [Suspect]
     Active Substance: TICAGRELOR
     Indication: ANGINA UNSTABLE
     Route: 048
     Dates: start: 20181222, end: 20190420
  8. OLOPATADINE HYDROCHLORIDE. [Concomitant]
     Active Substance: OLOPATADINE HYDROCHLORIDE
     Dosage: NUMBER OF SEPARATE DOSAGES UNKNOWN
     Route: 048
  9. DILTIAZEM HYDROCHLORIDE. [Concomitant]
     Active Substance: DILTIAZEM HYDROCHLORIDE
     Dosage: NUMBER OF SEPARATE DOSAGES UNKNOWN
     Route: 048
     Dates: end: 20190426
  10. ISOSORBIDE MONONITRATE. [Concomitant]
     Active Substance: ISOSORBIDE MONONITRATE
     Dosage: NUMBER OF SEPARATE DOSAGES UNKNOWN
     Route: 048
     Dates: end: 20190426
  11. ROZEREM [Concomitant]
     Active Substance: RAMELTEON
     Indication: PROPHYLAXIS
     Dosage: AS REQUIRED
     Route: 048
     Dates: end: 20190420
  12. RYZODEG 70/30 [Concomitant]
     Active Substance: INSULIN ASPART\INSULIN DEGLUDEC
     Dosage: NUMBER OF SEPARATE DOSAGES UNKNOWN
     Route: 065
     Dates: end: 20190424
  13. HUMALOG [Concomitant]
     Active Substance: INSULIN LISPRO
     Dosage: NUMBER OF SEPARATE DOSAGES UNKNOWN
     Route: 065
     Dates: end: 20190516
  14. BISOPROLOL FUMARATE. [Concomitant]
     Active Substance: BISOPROLOL FUMARATE
     Indication: ANGINA UNSTABLE
     Dosage: NUMBER OF SEPARATE DOSAGES UNKNOWN
     Route: 048
     Dates: end: 20190425
  15. BRILINTA [Suspect]
     Active Substance: TICAGRELOR
     Indication: ANGINA UNSTABLE
     Route: 048
     Dates: start: 20181221, end: 20181221
  16. ASPIRIN. [Concomitant]
     Active Substance: ASPIRIN
     Dosage: NUMBER OF SEPARATE DOSAGES UNKNOWN
     Route: 065
     Dates: end: 20190423
  17. LOTRIGA [Concomitant]
     Active Substance: OMEGA-3-ACID ETHYL ESTERS
     Dosage: NUMBER OF SEPARATE DOSAGES UNKNOWN
     Route: 048

REACTIONS (3)
  - Diabetes mellitus [Recovering/Resolving]
  - Ischaemic stroke [Recovering/Resolving]
  - Myocardial infarction [Recovering/Resolving]

NARRATIVE: CASE EVENT DATE: 20190415
